FAERS Safety Report 4983185-8 (Version None)
Quarter: 2006Q2

REPORT INFORMATION
  Report Type: 
  Country: None (occurrence: None)
  Receive Date: 20060426
  Receipt Date: 20040527
  Transmission Date: 20061013
  Serious: Yes (Hospitalization, Other)
  Sender: FDA-Public Use
  Company Number: GB-GLAXOSMITHKLINE-B0334223A

PATIENT
  Age: 36 Year
  Sex: Female

DRUGS (2)
  1. ZYBAN [Suspect]
  2. VALPROATE SODIUM [Concomitant]
     Dosage: 700MG PER DAY
     Route: 065

REACTIONS (12)
  - ABASIA [None]
  - CONFUSIONAL STATE [None]
  - CONVULSION [None]
  - DEPRESSED MOOD [None]
  - DEPRESSION [None]
  - DISABILITY [None]
  - EPILEPSY [None]
  - FATIGUE [None]
  - IMPAIRED DRIVING ABILITY [None]
  - ORAL INFECTION [None]
  - STRESS [None]
  - SUICIDAL IDEATION [None]
